FAERS Safety Report 10465798 (Version 1)
Quarter: 2014Q3

REPORT INFORMATION
  Report Type: Report from Study
  Country: US (occurrence: US)
  Receive Date: 20140921
  Receipt Date: 20140921
  Transmission Date: 20150326
  Serious: Yes (Hospitalization, Other)
  Sender: FDA-Public Use
  Company Number: PHHY2014US119620

PATIENT
  Age: 40 Year
  Sex: Female

DRUGS (8)
  1. TACROLIMUS. [Suspect]
     Active Substance: TACROLIMUS
     Dosage: 7 MG, BID
     Route: 048
     Dates: start: 20130926
  2. TACROLIMUS. [Suspect]
     Active Substance: TACROLIMUS
     Dosage: 6 MG (IN THE EVENING MORNING DOSE HELD)
     Route: 048
     Dates: start: 20130917
  3. BASILIXIMAB [Suspect]
     Active Substance: BASILIXIMAB
     Indication: RENAL TRANSPLANT
     Dosage: 20 MG (INTRAOPERATIVE AND POST OPERATION DAY)
     Route: 042
     Dates: start: 20130912, end: 20130916
  4. MYCOPHENOLATE MOFETIL. [Suspect]
     Active Substance: MYCOPHENOLATE MOFETIL
     Indication: RENAL TRANSPLANT
     Dosage: 1000 MG, BID
     Route: 048
     Dates: start: 20130912
  5. TACROLIMUS. [Suspect]
     Active Substance: TACROLIMUS
     Indication: RENAL TRANSPLANT
     Dosage: (6 TO 14 MG TOTAL DOSE)
     Route: 048
     Dates: start: 20130912, end: 20130916
  6. TACROLIMUS. [Suspect]
     Active Substance: TACROLIMUS
     Dosage: 12 MG (TOTAL DOSE)
     Route: 048
     Dates: start: 20130918, end: 20130925
  7. PREDNISONE. [Concomitant]
     Active Substance: PREDNISONE
     Dosage: UNK
     Dates: start: 20130916, end: 20130917
  8. METHYLPREDNISOLONE [Concomitant]
     Active Substance: METHYLPREDNISOLONE
     Dosage: UNK
     Dates: start: 20130917, end: 20130917

REACTIONS (6)
  - Renal failure acute [Recovered/Resolved]
  - Blood creatine increased [Unknown]
  - Glomerulosclerosis [Unknown]
  - Renal tubular atrophy [Unknown]
  - Immunosuppressant drug level increased [Unknown]
  - Kidney transplant rejection [Recovered/Resolved]

NARRATIVE: CASE EVENT DATE: 20130917
